FAERS Safety Report 21183341 (Version 1)
Quarter: 2022Q3

REPORT INFORMATION
  Report Type: Report from Study
  Country: DE (occurrence: DE)
  Receive Date: 20220808
  Receipt Date: 20220808
  Transmission Date: 20221027
  Serious: Yes (Hospitalization)
  Sender: FDA-Public Use
  Company Number: DE-ABBVIE-22K-062-4494754-00

PATIENT
  Age: 67 Year
  Sex: Female

DRUGS (5)
  1. RINVOQ [Suspect]
     Active Substance: UPADACITINIB
     Indication: Product used for unknown indication
     Route: 048
     Dates: start: 202010
  2. METHOTREXATE [Concomitant]
     Active Substance: METHOTREXATE
     Indication: Product used for unknown indication
     Dosage: STOPPED BETWEEN 12 OCT 2020- 04 JAN 2021
  3. METHOTREXATE [Concomitant]
     Active Substance: METHOTREXATE
     Dosage: STARTED BETWEEN 12 OCT 2020- 04 JAN 2021?ENDED BETWEEN 04JAN2021-07APR2021
     Dates: end: 2021
  4. METHOTREXATE [Concomitant]
     Active Substance: METHOTREXATE
     Dosage: START DATE TEXT: BETWEEN 12OCT2020-04JAN2021?ENDED BETWEEN 04JAN2021-07APR2021
     Dates: start: 2021, end: 2021
  5. METHOTREXATE [Concomitant]
     Active Substance: METHOTREXATE
     Dosage: START DATE TEXT: BETWEEN 07APR2021-14OCT2021?ENDED BETWEEN 14 OCT 2021- 19 APR 2022
     Dates: start: 2021

REACTIONS (1)
  - Arrhythmia [Unknown]

NARRATIVE: CASE EVENT DATE: 20220309
